FAERS Safety Report 8893178 (Version 2)
Quarter: 2013Q3

REPORT INFORMATION
  Report Type: Spontaneous
  Country: US (occurrence: None)
  Receive Date: 20121101
  Receipt Date: 20130917
  Transmission Date: 20140515
  Serious: Yes (Death, Hospitalization, Other)
  Sender: FDA-Public Use
  Company Number: 2012P1061149

PATIENT
  Age: 81 Year
  Sex: Female
  Weight: 58.97 kg

DRUGS (9)
  1. MORPHINE [Suspect]
     Indication: DYSPNOEA
     Route: 042
     Dates: start: 20120415, end: 20120415
  2. MORPHINE [Suspect]
     Indication: ANXIETY
     Route: 042
     Dates: start: 20120415, end: 20120415
  3. ATIVAN [Suspect]
     Indication: DYSPNOEA
     Route: 042
     Dates: start: 20120415, end: 20120415
  4. ATIVAN [Suspect]
     Indication: ANXIETY
     Route: 042
     Dates: start: 20120415, end: 20120415
  5. SCOPOLAMINE PATCH [Suspect]
     Dates: start: 20120415
  6. CHEMOTHERAPY [Concomitant]
  7. HIGH BLOOD PRESSURE [Concomitant]
  8. DIGOXIN [Concomitant]
  9. METOPROLOL [Concomitant]

REACTIONS (11)
  - Dyspnoea [None]
  - Heart rate decreased [None]
  - Feeling abnormal [None]
  - Body temperature decreased [None]
  - Urine output decreased [None]
  - Myocardial infarction [None]
  - Overdose [None]
  - Renal failure acute [None]
  - Multi-organ failure [None]
  - Acute respiratory failure [None]
  - Septic shock [None]
